FAERS Safety Report 26046136 (Version 1)
Quarter: 2025Q4

REPORT INFORMATION
  Report Type: Spontaneous
  Country: EU (occurrence: EU)
  Receive Date: 20251114
  Receipt Date: 20251114
  Transmission Date: 20260117
  Serious: Yes (Other)
  Sender: Vantive US Healthcare
  Company Number: EU-VANTIVE-2025VAN005131

PATIENT
  Age: 33 Year
  Sex: Male

DRUGS (1)
  1. CALCIUM CL\DEXTROSE\MAGNESIUM CL\SODIUM BICAR\SODIUM CL\SODIUM LACT [Suspect]
     Active Substance: CALCIUM CHLORIDE\DEXTROSE MONOHYDRATE\MAGNESIUM CHLORIDE\SODIUM BICARBONATE\SODIUM CHLORIDE\SODIUM L
     Indication: Peritoneal dialysis
     Dosage: UNK
     Route: 033

REACTIONS (6)
  - Peritonitis [Recovered/Resolved]
  - Peritoneal cloudy effluent [Recovered/Resolved]
  - Peritoneal effluent leukocyte count increased [Recovered/Resolved]
  - Peritonitis [Unknown]
  - Peritoneal cloudy effluent [Unknown]
  - Peritoneal effluent leukocyte count increased [Unknown]

NARRATIVE: CASE EVENT DATE: 20251106
